FAERS Safety Report 5663842-0 (Version None)
Quarter: 2008Q1

REPORT INFORMATION
  Report Type: 
  Country: None (occurrence: None)
  Receive Date: 20080311
  Receipt Date: 20080228
  Transmission Date: 20080703
  Serious: Yes (Death)
  Sender: FDA-Public Use
  Company Number: GB-DEXPHARM-20080098

PATIENT
  Age: 80 Year
  Sex: Female

DRUGS (9)
  1. OMEPRAZOLE [Suspect]
     Dosage: ^ONCE DAILY^ {20 MG MILLIGRAM(S)} ORAL
     Route: 048
  2. SIMVASTATIN [Suspect]
     Dosage: 40 MG TABLETS ^ ONCE DAILY AT NIGHT ^ ORAL
     Route: 048
  3. ASPIRIN [Concomitant]
  4. GAVISCON ADVANCE LIQUID [Concomitant]
  5. PERINDOPRIL [Concomitant]
  6. PARACETAMOL [Concomitant]
  7. METOPROLOL TARTRATE [Concomitant]
  8. DIPYRIDAMOLE [Concomitant]
  9. ADALAT [Concomitant]

REACTIONS (1)
  - DYSPHAGIA [None]
